FAERS Safety Report 9826230 (Version 1)
Quarter: 2013Q4

REPORT INFORMATION
  Report Type: Spontaneous
  Country: US (occurrence: None)
  Receive Date: 20131223
  Receipt Date: 20131223
  Transmission Date: 20140711
  Serious: Yes (Other)
  Sender: FDA-Public Use
  Company Number: 222589LEO

PATIENT
  Age: 61 Year
  Sex: Female

DRUGS (2)
  1. PICATO [Suspect]
     Indication: ACTINIC KERATOSIS
     Dosage: (1 IN 1 D), TOPICAL
     Route: 061
     Dates: start: 20130712, end: 20130715
  2. NITROGEN [Suspect]
     Dates: start: 20130712

REACTIONS (20)
  - Vision blurred [None]
  - Application site dryness [None]
  - Application site reaction [None]
  - Eye irritation [None]
  - Application site rash [None]
  - Application site warmth [None]
  - Eye irritation [None]
  - Application site erythema [None]
  - Application site exfoliation [None]
  - Application site vesicles [None]
  - Application site pruritus [None]
  - Product packaging issue [None]
  - Product odour abnormal [None]
  - Accidental exposure to product [None]
  - Accidental overdose [None]
  - Drug administration error [None]
  - Wrong technique in drug usage process [None]
  - Product label confusion [None]
  - Drug dispensing error [None]
  - Incorrect drug administration duration [None]
